FAERS Safety Report 19436984 (Version 1)
Quarter: 2021Q2

REPORT INFORMATION
  Report Type: Spontaneous
  Country: FR (occurrence: FR)
  Receive Date: 20210618
  Receipt Date: 20210618
  Transmission Date: 20210717
  Serious: Yes (Other)
  Sender: FDA-Public Use
  Company Number: FR-MYLANLABS-2021M1035704

PATIENT
  Age: 36 Year
  Sex: Female
  Weight: 66 kg

DRUGS (2)
  1. AZITHROMYCINE [Concomitant]
     Active Substance: AZITHROMYCIN
     Indication: INFLUENZA LIKE ILLNESS
     Dosage: UNK
     Route: 048
  2. CIPROFLOXACIN. [Suspect]
     Active Substance: CIPROFLOXACIN
     Indication: INFLUENZA LIKE ILLNESS
     Dosage: UNK
     Route: 048

REACTIONS (1)
  - Uveitis [Recovered/Resolved]

NARRATIVE: CASE EVENT DATE: 202011
